FAERS Safety Report 16870832 (Version 1)
Quarter: 2019Q3

REPORT INFORMATION
  Report Type: Spontaneous
  Country: US (occurrence: US)
  Receive Date: 20190930
  Receipt Date: 20190930
  Transmission Date: 20191005
  Serious: No
  Sender: FDA-Public Use
  Company Number: US-CLOVIS ONCOLOGY-CLO-2019-001383

PATIENT
  Sex: Female

DRUGS (2)
  1. RUBRACA [Suspect]
     Active Substance: RUCAPARIB CAMSYLATE
     Indication: OVARIAN CANCER
     Dosage: 600 MG, BID
     Route: 048
     Dates: start: 2019
  2. RUBRACA [Suspect]
     Active Substance: RUCAPARIB CAMSYLATE
     Dosage: 600 MG, BID
     Route: 048
     Dates: start: 20190502, end: 20190830

REACTIONS (14)
  - Chromaturia [Unknown]
  - Cardiac disorder [Unknown]
  - Liver disorder [Unknown]
  - Oral mucosal blistering [Unknown]
  - Dental caries [Unknown]
  - Hyperhidrosis [Unknown]
  - Nausea [Unknown]
  - Fatigue [Recovering/Resolving]
  - Gingival blister [Recovering/Resolving]
  - Tongue blistering [Unknown]
  - Dyspnoea [Unknown]
  - Weight increased [Unknown]
  - Renal disorder [Unknown]
  - Carbohydrate antigen 125 increased [Unknown]

NARRATIVE: CASE EVENT DATE: 2019
